FAERS Safety Report 7954246-6 (Version None)
Quarter: 2011Q4

REPORT INFORMATION
  Report Type: 
  Country: None (occurrence: None)
  Receive Date: 20111129
  Receipt Date: 20111121
  Transmission Date: 20120403
  Serious: Yes (Other)
  Sender: FDA-Public Use
  Company Number: DSU-2011-08734

PATIENT
  Sex: Female

DRUGS (2)
  1. WELCHOL [Suspect]
     Indication: DIABETES MELLITUS
     Dosage: PER ORAL
     Route: 048
  2. WELCHOL [Suspect]
     Indication: HYPERLIPIDAEMIA
     Dosage: PER ORAL
     Route: 048

REACTIONS (1)
  - GASTROINTESTINAL INFLAMMATION [None]
